FAERS Safety Report 5098439-7 (Version None)
Quarter: 2006Q3

REPORT INFORMATION
  Report Type: 
  Country: None (occurrence: None)
  Receive Date: 20060907
  Receipt Date: 20031030
  Transmission Date: 20061208
  Serious: Yes (Life-Threatening)
  Sender: FDA-Public Use
  Company Number: FR-BRISTOL-MYERS SQUIBB COMPANY-12421921

PATIENT
  Age: 37 Year
  Sex: Male

DRUGS (4)
  1. FUNGIZONE [Suspect]
     Route: 048
     Dates: start: 20030826, end: 20030916
  2. MOPRAL [Suspect]
     Dates: start: 20030816, end: 20030921
  3. AMBISOME [Suspect]
     Dosage: ON 8/23/03 INCREASED FROM 400 MG TO 800 MG, ON 9/9/03 DECREASED TO 400 MG, DISCONTINUED ON 9/18/03.
     Route: 042
     Dates: end: 20030918
  4. CANCIDAS [Suspect]
     Dates: start: 20030817, end: 20030928

REACTIONS (2)
  - ATRIOVENTRICULAR BLOCK [None]
  - CARDIAC ARREST [None]
